FAERS Safety Report 5446697-9 (Version None)
Quarter: 2007Q3

REPORT INFORMATION
  Report Type: 
  Country: None (occurrence: None)
  Receive Date: 20070907
  Receipt Date: 20070906
  Transmission Date: 20080115
  Serious: Yes (Hospitalization)
  Sender: FDA-Public Use
  Company Number: FR-ABBOTT-96P-056-0070021-00

PATIENT
  Age: 35 Year
  Sex: Male

DRUGS (5)
  1. DEPAKENE [Suspect]
     Indication: CEREBROVASCULAR ACCIDENT
     Route: 048
     Dates: start: 19880101, end: 19951201
  2. DEPAKENE [Suspect]
  3. DEPAKENE [Suspect]
  4. TICLOPIDINE HCL [Concomitant]
     Route: 065
     Dates: start: 19880101
  5. ENALAPRIL [Concomitant]
     Route: 065
     Dates: start: 19951016

REACTIONS (8)
  - ACIDOSIS [None]
  - HYPERCHLORAEMIA [None]
  - HYPERKALAEMIA [None]
  - KIDNEY FIBROSIS [None]
  - NEPHROTIC SYNDROME [None]
  - PANCREATITIS [None]
  - RENAL FAILURE [None]
  - RHABDOMYOLYSIS [None]
